FAERS Safety Report 17114631 (Version 1)
Quarter: 2020Q3

REPORT INFORMATION
  Report Type: Spontaneous
  Country: FR (occurrence: FR)
  Receive Date: 20191205
  Receipt Date: 20191205
  Transmission Date: 20201104
  Serious: Yes (Hospitalization, Other)
  Sender: FDA-Public Use
  Company Number: FR-AUROBINDO-AUR-APL-2019-103124

PATIENT
  Age: 36 Year
  Sex: Male
  Weight: 30 kg

DRUGS (8)
  1. FERROUS SULFATE. [Suspect]
     Active Substance: FERROUS SULFATE
     Indication: PRODUCT USED FOR UNKNOWN INDICATION
     Dosage: UNK
     Route: 065
  2. PYOSTACINE [Suspect]
     Active Substance: PRISTINAMYCIN
     Indication: INFECTION PROPHYLAXIS
     Dosage: 2 DOSAGE FORM, ONCE A DAY
     Route: 048
     Dates: start: 20190416, end: 20190418
  3. DIAZEPAM. [Suspect]
     Active Substance: DIAZEPAM
     Indication: PRODUCT USED FOR UNKNOWN INDICATION
     Dosage: 12 DOSAGE FORM (12 DF DROPS)
     Route: 065
     Dates: start: 20190422
  4. PYOSTACINE [Suspect]
     Active Substance: PRISTINAMYCIN
     Indication: WEDGE RESECTION TOENAIL
  5. PYOSTACINE [Suspect]
     Active Substance: PRISTINAMYCIN
     Indication: INFLAMMATION
  6. THERALENE [Suspect]
     Active Substance: TRIMEPRAZINE
     Indication: PRODUCT USED FOR UNKNOWN INDICATION
     Dosage: 4 GTT DROPS, ONCE A DAY (4 DROPS IN THE EVENING)
     Route: 065
     Dates: start: 20190422
  7. ESOMEPRAZOLE GASTRO?RESISTANT TABLETS [Suspect]
     Active Substance: ESOMEPRAZOLE
     Indication: PRODUCT USED FOR UNKNOWN INDICATION
     Dosage: UNK UNK, ONCE A DAY
     Route: 065
  8. IMOVANE [Suspect]
     Active Substance: ZOPICLONE
     Indication: PRODUCT USED FOR UNKNOWN INDICATION
     Dosage: 0.5 DOSAGE FORM, ONCE A DAY
     Route: 065
     Dates: start: 20190422

REACTIONS (16)
  - Diarrhoea [Unknown]
  - Oesophagitis ulcerative [Unknown]
  - Oesophageal haemorrhage [Unknown]
  - Faeces discoloured [Recovering/Resolving]
  - White blood cells urine positive [Unknown]
  - Haematemesis [Recovered/Resolved]
  - Condition aggravated [Recovered/Resolved]
  - Haemoglobin decreased [Recovered/Resolved]
  - Arthralgia [Unknown]
  - Lung disorder [Recovered/Resolved]
  - Cough [Recovered/Resolved]
  - Pyrexia [Recovered/Resolved]
  - Hypokalaemia [Unknown]
  - Bronchial obstruction [Recovered/Resolved]
  - Bacterial test positive [Unknown]
  - Breath sounds abnormal [Recovered/Resolved]

NARRATIVE: CASE EVENT DATE: 20190419
